FAERS Safety Report 9924030 (Version 1)
Quarter: 2014Q1

REPORT INFORMATION
  Report Type: Spontaneous
  Country: GB (occurrence: GB)
  Receive Date: 20140225
  Receipt Date: 20140225
  Transmission Date: 20141002
  Serious: Yes (Other)
  Sender: FDA-Public Use
  Company Number: GB-MYLANLABS-2014S1003167

PATIENT
  Age: 78 Year
  Sex: Female

DRUGS (1)
  1. DOXYCYCLINE HYCLATE [Suspect]
     Indication: INFECTION
     Dosage: 199 MG, DAILY
     Route: 048
     Dates: start: 20120423

REACTIONS (3)
  - Deafness [Unknown]
  - Hypoacusis [Unknown]
  - Autophony [Unknown]
